FAERS Safety Report 9628532 (Version 1)
Quarter: 2013Q4

REPORT INFORMATION
  Report Type: Spontaneous
  Country: IT (occurrence: IT)
  Receive Date: 20131017
  Receipt Date: 20131017
  Transmission Date: 20140711
  Serious: Yes (Other)
  Sender: FDA-Public Use
  Company Number: IT-ROCHE-1288840

PATIENT
  Age: 60 Year
  Sex: Female

DRUGS (8)
  1. ROACTEMRA [Suspect]
     Indication: RHEUMATOID ARTHRITIS
     Route: 042
     Dates: start: 20130222, end: 20131011
  2. REUMAFLEX [Suspect]
     Indication: RHEUMATOID ARTHRITIS
     Route: 058
     Dates: start: 20090101, end: 20131011
  3. DELTACORTENE [Concomitant]
     Route: 048
  4. TOTALIP [Concomitant]
     Route: 048
  5. NATECAL D3 [Concomitant]
     Route: 048
  6. LIMPIDEX [Concomitant]
     Route: 048
  7. FOLINA [Concomitant]
     Route: 048
  8. VALIUM [Concomitant]
     Route: 065

REACTIONS (1)
  - Vitreous detachment [Recovering/Resolving]
